FAERS Safety Report 10168843 (Version 1)
Quarter: 2014Q2

REPORT INFORMATION
  Report Type: Spontaneous
  Country: PT (occurrence: None)
  Receive Date: 20140509
  Receipt Date: 20140509
  Transmission Date: 20141212
  Serious: Yes (Hospitalization)
  Sender: FDA-Public Use
  Company Number: DEP_02082_2014

PATIENT
  Age: 62 Year
  Sex: Male

DRUGS (1)
  1. DICLOFENAC (DICLOFENAC) [Suspect]
     Indication: MUSCULOSKELETAL PAIN

REACTIONS (14)
  - Syncope [None]
  - Pruritus [None]
  - Vomiting [None]
  - Hyperhidrosis [None]
  - Palpitations [None]
  - Chest pain [None]
  - Confusional state [None]
  - Hyperhidrosis [None]
  - Rash [None]
  - Hypotension [None]
  - Wheezing [None]
  - Electrocardiogram ST segment elevation [None]
  - Kounis syndrome [None]
  - Anaphylactic reaction [None]
